FAERS Safety Report 4751210-5 (Version None)
Quarter: 2005Q3

REPORT INFORMATION
  Report Type: 
  Country: None (occurrence: None)
  Receive Date: 20050823
  Receipt Date: 20050823
  Transmission Date: 20060218
  Serious: Yes (Other)
  Sender: FDA-Public Use
  Company Number: None

PATIENT
  Age: 83 Year
  Sex: Female
  Weight: 38.5557 kg

DRUGS (4)
  1. FENTANYL [Suspect]
     Indication: ARTHRITIS
     Dosage: APPLY TOPICALLY Q 72 H
     Route: 061
     Dates: start: 20050413
  2. FENTANYL [Suspect]
     Indication: ASTHENIA
     Dosage: APPLY TOPICALLY Q 72 H
     Route: 061
     Dates: start: 20050413
  3. FENTANYL [Suspect]
     Indication: OSTEOPOROSIS
     Dosage: APPLY TOPICALLY Q 72 H
     Route: 061
     Dates: start: 20050413
  4. DURAGESIC-100 [Concomitant]

REACTIONS (1)
  - PHARMACEUTICAL PRODUCT COMPLAINT [None]
